FAERS Safety Report 7622891-3 (Version None)
Quarter: 2011Q3

REPORT INFORMATION
  Report Type: 
  Country: None (occurrence: None)
  Receive Date: 20110720
  Receipt Date: 20110711
  Transmission Date: 20111222
  Serious: Yes (Other)
  Sender: FDA-Public Use
  Company Number: US-BAYER-200943908NA

PATIENT
  Age: 48 Year
  Sex: Female
  Weight: 97.506 kg

DRUGS (5)
  1. NEXIUM [Concomitant]
     Dosage: 40 MG, UNK
  2. YAZ [Suspect]
     Indication: PRODUCT USED FOR UNKNOWN INDICATION
     Dosage: UNK
     Dates: start: 20070101
  3. LEVOXYL [Concomitant]
     Dosage: 50 UNK, UNK
  4. ALPRAZOLAM [Concomitant]
     Dosage: 0.5 MG, UNK
  5. YASMIN [Suspect]
     Indication: PRODUCT USED FOR UNKNOWN INDICATION
     Dosage: UNK
     Dates: start: 20020101

REACTIONS (3)
  - GALLBLADDER DISORDER [None]
  - CHOLECYSTITIS CHRONIC [None]
  - ORGAN FAILURE [None]
